FAERS Safety Report 5103358-3 (Version None)
Quarter: 2006Q3

REPORT INFORMATION
  Report Type: 
  Country: None (occurrence: None)
  Receive Date: 20060913
  Receipt Date: 20060830
  Transmission Date: 20061208
  Serious: Yes (Other)
  Sender: FDA-Public Use
  Company Number: US-AMGEN-STX191751

PATIENT
  Sex: Female

DRUGS (1)
  1. ENBREL [Suspect]
     Indication: ANKYLOSING SPONDYLITIS

REACTIONS (8)
  - AORTIC VALVE INCOMPETENCE [None]
  - CONDITION AGGRAVATED [None]
  - FOOT FRACTURE [None]
  - GASTROINTESTINAL DISORDER [None]
  - MIGRAINE [None]
  - RHEUMATOID ARTHRITIS [None]
  - STRESS FRACTURE [None]
  - SYSTEMIC LUPUS ERYTHEMATOSUS [None]
